FAERS Safety Report 4892109-3 (Version None)
Quarter: 2006Q1

REPORT INFORMATION
  Report Type: 
  Country: None (occurrence: None)
  Receive Date: 20060123
  Receipt Date: 20050106
  Transmission Date: 20060701
  Serious: Yes (Death)
  Sender: FDA-Public Use
  Company Number: 2006000038

PATIENT
  Age: 53 Year
  Sex: Male

DRUGS (8)
  1. ERLOTINIB HCL (TABLET) [Suspect]
     Indication: NON-SMALL CELL LUNG CANCER
     Dosage: 150 MG (QD), ORAL
     Route: 048
     Dates: start: 20051206
  2. OXYCONTIN [Concomitant]
  3. DICLOFENAC SODIUM [Concomitant]
  4. LANSOPRAZOLE [Concomitant]
  5. LORAZEPAM [Concomitant]
  6. GABAPENTIN [Concomitant]
  7. LACTULOSE [Concomitant]
  8. SENNA (SENNA) [Concomitant]

REACTIONS (1)
  - SUDDEN DEATH [None]
